FAERS Safety Report 5305418-0 (Version None)
Quarter: 2007Q2

REPORT INFORMATION
  Report Type: 
  Country: None (occurrence: None)
  Receive Date: 20070424
  Receipt Date: 20070413
  Transmission Date: 20071010
  Serious: Yes (Other)
  Sender: FDA-Public Use
  Company Number: IE-NOVOPROD-262721

PATIENT
  Age: 68 Year
  Sex: Male

DRUGS (7)
  1. NOVORAPID FLEXPEN [Suspect]
     Indication: DRUG USE FOR UNKNOWN INDICATION
     Dosage: 5+3 IU, BID
     Route: 058
     Dates: start: 20070327, end: 20070331
  2. PROSCAR [Concomitant]
     Indication: DRUG USE FOR UNKNOWN INDICATION
     Dosage: 5 MG, QD
     Route: 048
     Dates: start: 20051012
  3. LIPITOR [Concomitant]
     Indication: BLOOD CHOLESTEROL INCREASED
     Dosage: 10 MG, QD
     Route: 048
     Dates: start: 20050309
  4. ZOTON [Concomitant]
     Indication: DRUG USE FOR UNKNOWN INDICATION
  5. NASOBEC [Concomitant]
     Indication: DRUG USE FOR UNKNOWN INDICATION
     Dosage: PN
     Dates: start: 20060316
  6. TRUSOPT [Concomitant]
     Indication: DRUG USE FOR UNKNOWN INDICATION
     Dosage: ONE DROP IN BOTH EYES
     Route: 057
     Dates: start: 20070403
  7. ARTELAC                            /00002701/ [Concomitant]
     Indication: DRUG USE FOR UNKNOWN INDICATION

REACTIONS (2)
  - DYSGEUSIA [None]
  - NAUSEA [None]
